FAERS Safety Report 14415533 (Version 1)
Quarter: 2018Q1

REPORT INFORMATION
  Report Type: Not Available
  Country: US (occurrence: US)
  Receive Date: 20180121
  Receipt Date: 20180121
  Transmission Date: 20180509
  Serious: No
  Sender: FDA-Public Use
  Company Number: US-NEUROCRINE BIOSCIENCES INC.-2017NBI02108

PATIENT
  Age: 62 Year
  Sex: Female

DRUGS (4)
  1. INGREZZA [Suspect]
     Active Substance: VALBENAZINE
     Indication: TARDIVE DYSKINESIA
     Route: 048
     Dates: start: 20171018, end: 20171225
  2. XANAX [Concomitant]
     Active Substance: ALPRAZOLAM
  3. BENZTROPINE. [Concomitant]
     Active Substance: BENZTROPINE
  4. TRIFLUPHENAZINE [Concomitant]

REACTIONS (2)
  - Nausea [Unknown]
  - Hyperphagia [Unknown]

NARRATIVE: CASE EVENT DATE: 2017
